FAERS Safety Report 7650187-2 (Version None)
Quarter: 2011Q3

REPORT INFORMATION
  Report Type: 
  Country: None (occurrence: None)
  Receive Date: 20110802
  Receipt Date: 20110718
  Transmission Date: 20111222
  Serious: Yes (Hospitalization)
  Sender: FDA-Public Use
  Company Number: US-ROCHE-786017

PATIENT
  Sex: Male

DRUGS (15)
  1. ATIVAN [Concomitant]
     Indication: NAUSEA
     Dosage: EVERYSIX TO EIGHT HOURS AS NEEDED FOR NAUSEA
     Route: 048
     Dates: start: 20100407
  2. VICODIN [Concomitant]
     Dosage: 5-500 MG TABS, 1-2 TABS BY MOUTH EVERY SIX HOURS AS NEEDED FORPAIN.DATE REPORTED AS 21 JUL 2011.
     Route: 048
     Dates: start: 20100721
  3. MIRALAX [Concomitant]
     Indication: CONSTIPATION
     Dosage: 1 PACKET A DAY AS NEEDED CONSTIPATION
     Route: 048
     Dates: start: 20100309
  4. IXABEPILONE [Suspect]
     Dosage: FREQUENCY MENTIONED AS DAYS 1,15
     Route: 042
     Dates: start: 20101012, end: 20110315
  5. ZOFRAN [Concomitant]
     Indication: NAUSEA
     Dosage: FREQUENCY:1 PER 12 HRS AS NEEDED FOR NAUSEA BEGINNING THE THIRD DAY AFTER STARTING CHEMOCYCLE
     Route: 048
     Dates: start: 20100407
  6. DEXAMETHASONE [Concomitant]
     Dosage: TAKEN STARTING THE NIGHT BEFORE CHEMO, MORNING OF 1HR P
     Route: 048
  7. MS CONTIN [Concomitant]
     Dosage: MENTIONED AS 30 MG TB12,
     Route: 048
     Dates: start: 20100309
  8. DOK [Concomitant]
     Indication: CONSTIPATION
     Dosage: 1-3 CAPS TWICE A DAY AS NEEDED CONSTIPATION
     Route: 048
     Dates: start: 20100309
  9. LIDODERM [Concomitant]
     Dosage: ONE PATCH TO CHESTWALL ONCE A DAY, REMOVED FOR 12 HOURS EACH DAY
     Dates: start: 20100519
  10. PROCHLORPERAZINE MALEATE [Concomitant]
     Dosage: 1 TABLET EVERY 6-8 HOURS AS NEEDED FOR NAUSEA
     Route: 048
  11. ADVAIR DISKUS 100/50 [Concomitant]
     Dosage: 100-50 MCG
     Dates: start: 20110305
  12. BEVACIZUMAB [Suspect]
     Dosage: FREQUENCY MENTIONED AS DAYS 1,8,15
     Route: 042
     Dates: start: 20101012, end: 20110607
  13. ADVAIR DISKUS 100/50 [Concomitant]
     Dosage: DOSE : 100-50 MCG/DOSE DRUG MENTIONED AS ADVAIR DISKUS
     Dates: start: 20100305
  14. OXYCODONE HYDROCHLORIDE [Concomitant]
     Indication: PAIN
     Dosage: 1 TO 3 TABLETS EVERY FOUR HOURS AS NEEDED BREAKTHROUGH PAIN
     Route: 048
     Dates: start: 20100309
  15. SENNA [Concomitant]
     Indication: CONSTIPATION
     Dosage: 1-3 TABS BY MOUTH TWICE A DAY AS NEEDED CONSTIPATION
     Route: 048
     Dates: start: 20100309

REACTIONS (3)
  - PROSTATIC ABSCESS [None]
  - PERIRECTAL ABSCESS [None]
  - PROSTATE CANCER [None]
